FAERS Safety Report 13189216 (Version 1)
Quarter: 2017Q1

REPORT INFORMATION
  Report Type: Spontaneous
  Country: US (occurrence: US)
  Receive Date: 20170203
  Receipt Date: 20170203
  Transmission Date: 20170428
  Serious: Yes (Other)
  Sender: FDA-Public Use
  Company Number: None

PATIENT
  Age: 9 Year
  Sex: Male
  Weight: 43 kg

DRUGS (1)
  1. ELELYSO [Suspect]
     Active Substance: TALIGLUCERASE ALFA
     Indication: GAUCHER^S DISEASE
     Dosage: 2400 UNITS EVERY 2-3 WEEKS IV?2 DOSES
     Route: 042

REACTIONS (5)
  - Nausea [None]
  - Infusion related reaction [None]
  - Pallor [None]
  - Retching [None]
  - Rash [None]

NARRATIVE: CASE EVENT DATE: 20170113
